FAERS Safety Report 4630967-8 (Version None)
Quarter: 2005Q2

REPORT INFORMATION
  Report Type: 
  Country: None (occurrence: None)
  Receive Date: 20050406
  Receipt Date: 20050406
  Transmission Date: 20051028
  Serious: No
  Sender: FDA-Public Use
  Company Number: None

PATIENT
  Sex: Female
  Weight: 62.27 kg

DRUGS (3)
  1. TOPOTECAN [Suspect]
     Dosage: 0.75MG/M2 OVER 30 MIN, DAYS 1, 2, + 3.
     Dates: start: 20041123
  2. ETOPOSIDE [Suspect]
     Dosage: 70MGM/2 OVER 60 MIN DAYS 8, 9, + 10.
  3. CISPLATIN [Suspect]
     Dosage: 20MG/M2 OVER 60MIN DAYS 8, 9, + 10

REACTIONS (1)
  - DRUG TOXICITY [None]
